FAERS Safety Report 20918743 (Version 1)
Quarter: 2022Q2

REPORT INFORMATION
  Report Type: Spontaneous
  Country: US (occurrence: US)
  Receive Date: 20220606
  Receipt Date: 20220606
  Transmission Date: 20220720
  Serious: Yes (Hospitalization, Other)
  Sender: FDA-Public Use
  Company Number: US-MACLEODS PHARMACEUTICALS US LTD-MAC2022035885

PATIENT

DRUGS (2)
  1. QUETIAPINE [Suspect]
     Active Substance: QUETIAPINE
     Indication: Memory impairment
     Dosage: UNK, DOSE INCREASED
     Route: 065
  2. QUETIAPINE [Suspect]
     Active Substance: QUETIAPINE
     Indication: Affective disorder
     Dosage: 100 MILLIGRAM, BID
     Route: 065

REACTIONS (3)
  - Staphylococcal parotitis [Recovered/Resolved]
  - Staphylococcal infection [Recovered/Resolved]
  - Dry mouth [Recovered/Resolved]
